FAERS Safety Report 8914230 (Version 1)
Quarter: 2012Q4

REPORT INFORMATION
  Report Type: Report from Study
  Country: JP (occurrence: JP)
  Receive Date: 20121119
  Receipt Date: 20121119
  Transmission Date: 20130627
  Serious: Yes (Other)
  Sender: FDA-Public Use
  Company Number: JP-ELI_LILLY_AND_COMPANY-JP201205004343

PATIENT
  Age: 51 Year
  Sex: Female

DRUGS (8)
  1. DULOXETINE HYDROCHLORIDE [Suspect]
     Indication: DEPRESSION
     Dosage: 20 mg, qd
     Route: 048
     Dates: start: 20110526, end: 20110601
  2. DULOXETINE HYDROCHLORIDE [Suspect]
     Dosage: 40 mg, qd
     Route: 048
     Dates: start: 20110602, end: 20110810
  3. DULOXETINE HYDROCHLORIDE [Suspect]
     Dosage: 20 mg, qd
     Route: 048
     Dates: start: 20110811, end: 20110825
  4. MYSLEE [Concomitant]
     Indication: INSOMNIA
     Dosage: UNK
  5. CONTOMIN [Concomitant]
     Indication: INSOMNIA
     Dosage: UNK
  6. DORAL [Concomitant]
     Indication: INSOMNIA
     Dosage: UNK
  7. ROZEREM [Concomitant]
     Indication: INSOMNIA
     Dosage: UNK
  8. ROHYPNOL [Concomitant]
     Indication: INSOMNIA
     Dosage: UNK

REACTIONS (1)
  - Pyelonephritis [Recovered/Resolved]
